FAERS Safety Report 7659735-X (Version None)
Quarter: 2011Q3

REPORT INFORMATION
  Report Type: 
  Country: None (occurrence: None)
  Receive Date: 20110805
  Receipt Date: 20101013
  Transmission Date: 20111222
  Serious: No
  Sender: FDA-Public Use
  Company Number: US-ABBOTT-10P-163-0678873-00

PATIENT
  Sex: Male
  Weight: 90.8 kg

DRUGS (6)
  1. DEPAKOTE ER [Suspect]
     Indication: BIPOLAR DISORDER
     Dosage: INCREASED EVERY THREE DAYS TO A MAXIMUM OF 1750MG
     Dates: start: 20100921, end: 20101001
  2. FISH OIL [Concomitant]
     Indication: MEDICAL DIET
  3. VITAMIN TAB [Concomitant]
     Indication: VITAMIN SUPPLEMENTATION
  4. DEPAKOTE ER [Suspect]
     Dates: start: 20101001
  5. MELATONIN [Concomitant]
     Indication: PRODUCT USED FOR UNKNOWN INDICATION
  6. LUVOX [Concomitant]
     Indication: BIPOLAR DISORDER
     Dates: start: 20100101

REACTIONS (3)
  - DEPRESSION [None]
  - HYPERSOMNIA [None]
  - LETHARGY [None]
